FAERS Safety Report 24684802 (Version 5)
Quarter: 2025Q3

REPORT INFORMATION
  Report Type: Report from Study
  Country: US (occurrence: US)
  Receive Date: 20241202
  Receipt Date: 20250828
  Transmission Date: 20251021
  Serious: Yes (Hospitalization, Other)
  Sender: INCYTE
  Company Number: US-EVENT-000685

PATIENT

DRUGS (8)
  1. JAKAFI [Suspect]
     Active Substance: RUXOLITINIB
     Indication: Polycythaemia vera
     Dosage: 10 MILLIGRAM, BID
     Route: 065
  2. JAKAFI [Suspect]
     Active Substance: RUXOLITINIB
  3. JAKAFI [Suspect]
     Active Substance: RUXOLITINIB
     Dosage: 10 MILLIGRAM, QD
  4. JAKAFI [Suspect]
     Active Substance: RUXOLITINIB
     Dosage: 10 MILLIGRAM, QD (EVERY EVENING)
  5. JAKAFI [Suspect]
     Active Substance: RUXOLITINIB
     Dosage: 10 MILLIGRAM, QD
  6. JAKAFI [Suspect]
     Active Substance: RUXOLITINIB
     Dosage: 10 MILLIGRAM IN THE MORNING AND 10MG IN THE EVENING
  7. JAKAFI [Suspect]
     Active Substance: RUXOLITINIB
     Dosage: UNK, TID
     Route: 065
  8. JAKAFI [Suspect]
     Active Substance: RUXOLITINIB
     Dosage: 10 MILLIGRAM, IN THE MORNING AND IN THE EVENING

REACTIONS (13)
  - Nephrolithiasis [Recovered/Resolved]
  - Pruritus [Unknown]
  - Pain of skin [Unknown]
  - White blood cell count increased [Unknown]
  - Full blood count decreased [Unknown]
  - Back pain [Unknown]
  - Abdominal pain [Unknown]
  - Asthenia [Unknown]
  - Hepatic steatosis [Unknown]
  - Irritable bowel syndrome [Unknown]
  - Arthropathy [Unknown]
  - Fatigue [Unknown]
  - Anaemia [Unknown]
